FAERS Safety Report 7020879-7 (Version None)
Quarter: 2010Q3

REPORT INFORMATION
  Report Type: 
  Country: None (occurrence: None)
  Receive Date: 20100929
  Receipt Date: 20100918
  Transmission Date: 20110219
  Serious: Yes (Other)
  Sender: FDA-Public Use
  Company Number: US-SANOFI-AVENTIS-2010SA056907

PATIENT
  Age: 11 Year
  Sex: Female

DRUGS (3)
  1. SOLOSTAR [Suspect]
  2. LANTUS [Suspect]
     Dosage: DOSE:13 UNIT(S)
     Route: 058
  3. LANTUS [Suspect]
     Dosage: 13-15 UNITS DOSE:15 UNIT(S)
     Route: 058

REACTIONS (5)
  - ANXIETY [None]
  - HYPOGLYCAEMIA [None]
  - INSOMNIA [None]
  - PRODUCT QUALITY ISSUE [None]
  - TREMOR [None]
